FAERS Safety Report 4530510-8 (Version None)
Quarter: 2004Q4

REPORT INFORMATION
  Report Type: 
  Country: None (occurrence: None)
  Receive Date: 20041216
  Receipt Date: 20041206
  Transmission Date: 20050328
  Serious: Yes (Other)
  Sender: FDA-Public Use
  Company Number: HQWYE390411NOV04

PATIENT
  Age: 71 Year
  Sex: Male

DRUGS (2)
  1. RAPAMUNE [Suspect]
     Indication: IMMUNOSUPPRESSANT DRUG THERAPY
     Dosage: 2 MG 1X 1 PER DAY
     Route: 048
     Dates: start: 20021106
  2. RAPAMUNE [Suspect]
     Indication: PROPHYLAXIS AGAINST TRANSPLANT REJECTION
     Dosage: 2 MG 1X 1 PER DAY
     Route: 048
     Dates: start: 20021106

REACTIONS (1)
  - PROSTATE CANCER [None]
